FAERS Safety Report 7636775-8 (Version None)
Quarter: 2011Q3

REPORT INFORMATION
  Report Type: 
  Country: None (occurrence: None)
  Receive Date: 20110726
  Receipt Date: 20110719
  Transmission Date: 20111222
  Serious: Yes (Other)
  Sender: FDA-Public Use
  Company Number: CA-ABBOTT-11P-028-0732080-00

PATIENT
  Sex: Male
  Weight: 55 kg

DRUGS (3)
  1. TYLENOL W/ CODEINE NO. 3 [Concomitant]
     Indication: PRODUCT USED FOR UNKNOWN INDICATION
  2. LUPRON DEPOT [Suspect]
     Indication: PROSTATE CANCER
     Dates: start: 20100306
  3. PREDNISONE [Concomitant]
     Indication: PRODUCT USED FOR UNKNOWN INDICATION
     Dates: start: 20110301

REACTIONS (6)
  - FATIGUE [None]
  - BACK PAIN [None]
  - METASTASES TO BONE [None]
  - METASTATIC NEOPLASM [None]
  - PROSTATE CANCER [None]
  - OEDEMA PERIPHERAL [None]
